FAERS Safety Report 5962905-X (Version None)
Quarter: 2008Q4

REPORT INFORMATION
  Report Type: 
  Country: None (occurrence: None)
  Receive Date: 20081119
  Receipt Date: 20081119
  Transmission Date: 20090506
  Serious: Yes (Other)
  Sender: FDA-Public Use
  Company Number: None

PATIENT

DRUGS (1)
  1. HALFLYTELY [Suspect]
     Dosage: 2 TABLETS BOX
     Dates: start: 20081023, end: 20081023

REACTIONS (4)
  - CHROMATOPSIA [None]
  - DIZZINESS [None]
  - NAUSEA [None]
  - THROAT IRRITATION [None]
